FAERS Safety Report 16710313 (Version 2)
Quarter: 2019Q3

REPORT INFORMATION
  Report Type: Spontaneous
  Country: US (occurrence: US)
  Receive Date: 20190816
  Receipt Date: 20190819
  Transmission Date: 20191004
  Serious: No
  Sender: FDA-Public Use
  Company Number: US-PFIZER INC-2019083272

PATIENT
  Age: 59 Year
  Sex: Female

DRUGS (6)
  1. LYRICA [Suspect]
     Active Substance: PREGABALIN
     Indication: POLYNEUROPATHY
     Dosage: 100 MG, UNK
  2. LYRICA [Suspect]
     Active Substance: PREGABALIN
     Dosage: 100 MG, 3X/DAY (2 CAPSULES (100 MG TOTAL) BY MOUTH 3 TIMES DAILY)
     Route: 048
  3. LYRICA [Suspect]
     Active Substance: PREGABALIN
     Dosage: 150 MG, 2X/DAY (3 CAPSULES PO (ORAL) BID (TWO TIMES IN A DAY))
     Route: 048
  4. LYRICA [Suspect]
     Active Substance: PREGABALIN
     Indication: NEUROPATHY PERIPHERAL
     Dosage: 250 MG, DAILY (50 MG CAPSULE, TAKE 1 CAPSULE BY MOUTH 5 TIMES DAILY)
     Route: 048
  5. LYRICA [Suspect]
     Active Substance: PREGABALIN
     Indication: MIGRAINE
     Dosage: 75 MG, UNK
  6. LYRICA [Suspect]
     Active Substance: PREGABALIN
     Dosage: 900 MG, DAILY (TAKING 6 PILLS A DAY OF 150MG)

REACTIONS (7)
  - Prescribed overdose [Unknown]
  - Weight increased [Unknown]
  - Drug ineffective [Unknown]
  - Drug effective for unapproved indication [Unknown]
  - Nephropathy [Unknown]
  - Product use issue [Unknown]
  - Off label use [Unknown]
